FAERS Safety Report 23985235 (Version 10)
Quarter: 2024Q4

REPORT INFORMATION
  Report Type: Report from Study
  Country: US (occurrence: US)
  Receive Date: 20240618
  Receipt Date: 20241226
  Transmission Date: 20250115
  Serious: Yes (Hospitalization)
  Sender: INSMED
  Company Number: US-INSMED, INC.-2024-02377-US

PATIENT
  Sex: Female

DRUGS (2)
  1. ARIKAYCE [Suspect]
     Active Substance: AMIKACIN
     Indication: Product used for unknown indication
     Dosage: 590 MILLIGRAM, QD
     Route: 055
     Dates: start: 202311, end: 2024
  2. ARIKAYCE [Suspect]
     Active Substance: AMIKACIN
     Dosage: UNK UNK, UNK
     Route: 055
     Dates: start: 202408

REACTIONS (15)
  - White blood cell count increased [Not Recovered/Not Resolved]
  - Hospitalisation [Unknown]
  - Hospitalisation [Unknown]
  - Hypoxia [Unknown]
  - Acute respiratory distress syndrome [Unknown]
  - Respiratory failure [Unknown]
  - Pneumonia [Unknown]
  - Tachycardia [Unknown]
  - Dehydration [Unknown]
  - Diarrhoea [Unknown]
  - Product dose omission issue [Unknown]
  - Device leakage [Unknown]
  - Underdose [Unknown]
  - Therapy interrupted [Unknown]
  - Intentional dose omission [Unknown]

NARRATIVE: CASE EVENT DATE: 20240101
